FAERS Safety Report 14555150 (Version 1)
Quarter: 2018Q1

REPORT INFORMATION
  Report Type: Spontaneous
  Country: US (occurrence: US)
  Receive Date: 20180219
  Receipt Date: 20180219
  Transmission Date: 20180509
  Serious: Yes (Life-Threatening, Hospitalization)
  Sender: FDA-Public Use
  Company Number: None

PATIENT
  Age: 20 Year
  Sex: Male
  Weight: 60.75 kg

DRUGS (7)
  1. CYMBALTA [Suspect]
     Active Substance: DULOXETINE HYDROCHLORIDE
     Indication: DEPRESSION
  2. LORAZEPAM. [Concomitant]
     Active Substance: LORAZEPAM
  3. LYRICA [Concomitant]
     Active Substance: PREGABALIN
  4. PRISTIQ EXTENDED-RELEASE [Concomitant]
     Active Substance: DESVENLAFAXINE SUCCINATE
  5. CYMBALTA [Suspect]
     Active Substance: DULOXETINE HYDROCHLORIDE
     Indication: PAIN
  6. GABAPENTIN. [Concomitant]
     Active Substance: GABAPENTIN
  7. CYMBALTA [Suspect]
     Active Substance: DULOXETINE HYDROCHLORIDE
     Indication: ANXIETY

REACTIONS (16)
  - Cervical vertebral fracture [None]
  - Drug ineffective [None]
  - Hallucination [None]
  - Mental impairment [None]
  - Paraesthesia [None]
  - Post-traumatic stress disorder [None]
  - Depression [None]
  - Panic attack [None]
  - Road traffic accident [None]
  - Rib fracture [None]
  - Withdrawal syndrome [None]
  - Suicidal ideation [None]
  - Splenic rupture [None]
  - Educational problem [None]
  - Insomnia [None]
  - Feeding disorder [None]

NARRATIVE: CASE EVENT DATE: 20170814
